FAERS Safety Report 5995136-8 (Version None)
Quarter: 2008Q4

REPORT INFORMATION
  Report Type: 
  Country: None (occurrence: None)
  Receive Date: 20081212
  Receipt Date: 20081204
  Transmission Date: 20090506
  Serious: Yes (Other)
  Sender: FDA-Public Use
  Company Number: PHHY2008IT30555

PATIENT
  Sex: Female

DRUGS (2)
  1. SYNTOCINON [Suspect]
     Indication: UTERINE CONTRACTIONS ABNORMAL
     Dosage: 25 MG, UNK
     Route: 042
     Dates: start: 20081122, end: 20081122
  2. RINGER LATTATO [Concomitant]
     Dosage: 500 ML
     Route: 042
     Dates: start: 20081122, end: 20081122

REACTIONS (6)
  - COLD SWEAT [None]
  - ERYTHEMA [None]
  - HYPOTENSION [None]
  - PHARYNGEAL OEDEMA [None]
  - TACHYCARDIA [None]
  - URTICARIA [None]
